FAERS Safety Report 10192854 (Version 1)
Quarter: 2014Q2

REPORT INFORMATION
  Report Type: Spontaneous
  Country: FR (occurrence: FR)
  Receive Date: 20140523
  Receipt Date: 20140523
  Transmission Date: 20141212
  Serious: Yes (Hospitalization)
  Sender: FDA-Public Use
  Company Number: FR-ABBVIE-14P-056-1240371-00

PATIENT
  Age: 2 Year
  Sex: 0

DRUGS (6)
  1. CLARITHROMYCIN [Concomitant]
     Indication: PRODUCT USED FOR UNKNOWN INDICATION
     Dates: start: 20140331, end: 20140403
  2. AMOXICILLIN [Concomitant]
     Indication: PRODUCT USED FOR UNKNOWN INDICATION
     Dates: start: 20140403, end: 20140404
  3. ORACILLINE [Concomitant]
     Indication: PRODUCT USED FOR UNKNOWN INDICATION
     Dates: start: 20140404
  4. LAMOTRIGINE [Concomitant]
     Indication: PRODUCT USED FOR UNKNOWN INDICATION
     Dates: start: 20140320, end: 20140324
  5. VALPROATE SODIUM [Suspect]
     Indication: FRONTAL LOBE EPILEPSY
     Route: 048
     Dates: start: 201402, end: 20140407
  6. TRILEPTAL [Suspect]
     Indication: EPILEPSY
     Route: 048
     Dates: start: 20140324, end: 20140407

REACTIONS (3)
  - Toxic epidermal necrolysis [Recovering/Resolving]
  - Dermatitis bullous [Recovering/Resolving]
  - Urticaria [Recovering/Resolving]
